FAERS Safety Report 24762216 (Version 1)
Quarter: 2024Q4

REPORT INFORMATION
  Report Type: Spontaneous
  Country: US (occurrence: US)
  Receive Date: 20241221
  Receipt Date: 20241221
  Transmission Date: 20250114
  Serious: No
  Sender: SANOFI AVENTIS
  Company Number: US-SA-2024SA373313

PATIENT
  Sex: Female
  Weight: 121.55 kg

DRUGS (16)
  1. DUPIXENT [Suspect]
     Active Substance: DUPILUMAB
     Indication: Dermatitis atopic
     Dosage: 300 MG, QOW
     Route: 058
  2. DUPIXENT [Suspect]
     Active Substance: DUPILUMAB
     Indication: Asthma
  3. GABAPENTIN [Concomitant]
     Active Substance: GABAPENTIN
  4. FUROSEMIDE [Concomitant]
     Active Substance: FUROSEMIDE
     Indication: Oedema
  5. METFORMIN HYDROCHLORIDE [Concomitant]
     Active Substance: METFORMIN HYDROCHLORIDE
  6. BENEFIBER [Concomitant]
     Active Substance: STARCH, WHEAT
  7. SPIRONOLACTONE [Concomitant]
     Active Substance: SPIRONOLACTONE
  8. VITAMIN E [Concomitant]
     Active Substance: .ALPHA.-TOCOPHEROL
  9. COLACE [Concomitant]
     Active Substance: DOCUSATE SODIUM
  10. DULOXETINE HYDROCHLORIDE [Concomitant]
     Active Substance: DULOXETINE HYDROCHLORIDE
  11. HYDROXYCHLOROQUINE SULFATE [Concomitant]
     Active Substance: HYDROXYCHLOROQUINE SULFATE
  12. OXYBUTYNIN CHLORIDE [Concomitant]
     Active Substance: OXYBUTYNIN CHLORIDE
  13. BACLOFEN [Concomitant]
     Active Substance: BACLOFEN
  14. CLONAZEPAM [Concomitant]
     Active Substance: CLONAZEPAM
  15. ARIPIPRAZOLE [Concomitant]
     Active Substance: ARIPIPRAZOLE
  16. DESONIDE [Concomitant]
     Active Substance: DESONIDE

REACTIONS (7)
  - Dyspnoea [Not Recovered/Not Resolved]
  - Weight increased [Unknown]
  - Oedema [Unknown]
  - Pruritus [Unknown]
  - Dry skin [Unknown]
  - Skin exfoliation [Unknown]
  - Therapeutic response decreased [Unknown]
